FAERS Safety Report 4332593-7 (Version None)
Quarter: 2004Q1

REPORT INFORMATION
  Report Type: 
  Country: None (occurrence: None)
  Receive Date: 20040330
  Receipt Date: 20040318
  Transmission Date: 20041129
  Serious: Yes (Life-Threatening)
  Sender: FDA-Public Use
  Company Number: KR-JNJFOC-20040304103

PATIENT
  Age: 17 Year
  Sex: Female
  Weight: 39 kg

DRUGS (4)
  1. SPORANOX [Suspect]
     Indication: PNEUMONIA FUNGAL
     Dosage: SEE IMAGE
     Route: 042
     Dates: start: 20040219, end: 20040225
  2. SPORANOX [Suspect]
     Indication: PNEUMONIA FUNGAL
     Dosage: SEE IMAGE
     Route: 042
     Dates: start: 20040225, end: 20040301
  3. SPORANOX [Suspect]
     Indication: PNEUMONIA FUNGAL
     Dosage: SEE IMAGE
     Route: 042
     Dates: start: 20040310, end: 20040310
  4. GLEEVEC [Concomitant]

REACTIONS (9)
  - ACTIVATED PARTIAL THROMBOPLASTIN TIME PROLONGED [None]
  - ASTHENIA [None]
  - CEREBRAL HAEMORRHAGE [None]
  - DYSARTHRIA [None]
  - HAEMOGLOBIN DECREASED [None]
  - HAEMORRHAGIC OVARIAN CYST [None]
  - HEADACHE [None]
  - PLATELET COUNT DECREASED [None]
  - PROTHROMBIN TIME PROLONGED [None]
